FAERS Safety Report 10682285 (Version 1)
Quarter: 2014Q4

REPORT INFORMATION
  Report Type: Spontaneous
  Country: FR (occurrence: None)
  Receive Date: 20141224
  Receipt Date: 20141224
  Transmission Date: 20150529
  Serious: Yes (Hospitalization)
  Sender: FDA-Public Use
  Company Number: 20140943

PATIENT
  Age: 50 Year
  Sex: Female

DRUGS (7)
  1. METHOTREXATE MYLAN (METHOTREXATE) [Suspect]
     Active Substance: METHOTREXATE
     Indication: T-CELL LYMPHOMA
     Dosage: NOT OTHERWISE SPECIFIED
     Route: 042
     Dates: start: 20140331, end: 20140331
  2. METOJECT (METHOTREXATE) [Suspect]
     Active Substance: METHOTREXATE SODIUM
     Indication: T-CELL LYMPHOMA
     Route: 037
     Dates: start: 20140401, end: 20140401
  3. METOJECT (METHOTREXATE) [Suspect]
     Active Substance: METHOTREXATE SODIUM
     Indication: NON-HODGKIN^S LYMPHOMA
     Route: 037
     Dates: start: 20140401, end: 20140401
  4. PURINETHOL (MERCAPTOPURINE) [Concomitant]
  5. SODIUM BICARBONATE (SODIUM BICARBONATE) [Concomitant]
  6. VINCRISTINE (VINCRISTINE) [Concomitant]
     Active Substance: VINCRISTINE
  7. METHOTREXATE MYLAN (METHOTREXATE) [Suspect]
     Active Substance: METHOTREXATE
     Indication: NON-HODGKIN^S LYMPHOMA
     Dosage: NOT OTHERWISE SPECIFIED
     Route: 042
     Dates: start: 20140331, end: 20140331

REACTIONS (18)
  - Hepatosplenomegaly [None]
  - Skin necrosis [None]
  - Acute kidney injury [None]
  - Liver function test abnormal [None]
  - Fall [None]
  - Abdominal pain [None]
  - Shock [None]
  - Rash macular [None]
  - Rash pruritic [None]
  - Scab [None]
  - Haemorrhagic anaemia [None]
  - Cholestatic liver injury [None]
  - Hallucination [None]
  - Dermatitis [None]
  - Dermatitis bullous [None]
  - Mucosal inflammation [None]
  - Confusional state [None]
  - Retroperitoneal haematoma [None]

NARRATIVE: CASE EVENT DATE: 20140402
